FAERS Safety Report 8367733-6 (Version None)
Quarter: 2012Q2

REPORT INFORMATION
  Report Type: 
  Country: None (occurrence: None)
  Receive Date: 20120517
  Receipt Date: 20120508
  Transmission Date: 20120825
  Serious: Yes (Other)
  Sender: FDA-Public Use
  Company Number: RO-GLAXOSMITHKLINE-A0977549A

PATIENT
  Age: 40 Year
  Sex: Female

DRUGS (1)
  1. CLOBETASOL PROPIONATE [Suspect]
     Indication: DRY SKIN
     Route: 061

REACTIONS (19)
  - MEMORY IMPAIRMENT [None]
  - WEIGHT INCREASED [None]
  - CORTISOL FREE URINE DECREASED [None]
  - PITUITARY TUMOUR BENIGN [None]
  - BLOOD CORTISOL DECREASED [None]
  - AMENORRHOEA [None]
  - HYPERTENSION [None]
  - MYALGIA [None]
  - DYSLIPIDAEMIA [None]
  - FAT REDISTRIBUTION [None]
  - SKIN STRIAE [None]
  - HEPATIC ENZYME INCREASED [None]
  - BLOOD CORTICOTROPHIN DECREASED [None]
  - ASTHENIA [None]
  - HYPERAEMIA [None]
  - HYPERURICAEMIA [None]
  - ADRENAL INSUFFICIENCY [None]
  - RETINOPATHY HYPERTENSIVE [None]
  - CUSHING'S SYNDROME [None]
